FAERS Safety Report 17361501 (Version 1)
Quarter: 2020Q1

REPORT INFORMATION
  Report Type: Spontaneous
  Country: US (occurrence: US)
  Receive Date: 20200203
  Receipt Date: 20200203
  Transmission Date: 20200409
  Serious: No
  Sender: FDA-Public Use
  Company Number: US-PFIZER INC-2020044277

PATIENT
  Age: 50 Year
  Sex: Female
  Weight: 50.35 kg

DRUGS (3)
  1. ESTRING [Suspect]
     Active Substance: ESTRADIOL
     Dosage: UNK
  2. PREMARIN [Suspect]
     Active Substance: ESTROGENS, CONJUGATED
     Indication: VULVOVAGINAL DRYNESS
     Dosage: UNK
     Route: 067
  3. ESTRACE [Suspect]
     Active Substance: ESTRADIOL
     Dosage: UNK

REACTIONS (1)
  - Drug hypersensitivity [Unknown]
